FAERS Safety Report 4280336-8 (Version None)
Quarter: 2004Q1

REPORT INFORMATION
  Report Type: 
  Country: None (occurrence: None)
  Receive Date: 20040126
  Receipt Date: 20040112
  Transmission Date: 20041129
  Serious: Yes (Hospitalization)
  Sender: FDA-Public Use
  Company Number: 2004-DE-00123DE

PATIENT
  Age: 69 Year
  Sex: Male

DRUGS (7)
  1. AGGRENOX [Suspect]
     Indication: CEREBROVASCULAR ACCIDENT
     Dosage: 2 ANZ (RT, 2 IN 1 D), PO
     Route: 048
     Dates: start: 20030601, end: 20030714
  2. ALLOPURINOL-RATIOPHARM 300 (TA) [Concomitant]
  3. DELIX PROTECT 10 (TA) [Concomitant]
  4. NOVO-RAPID (SPI) [Concomitant]
  5. PROTAPHANE (SPI) [Concomitant]
  6. TOREM 200 (TA_ [Concomitant]
  7. ZOCOR (TAF) [Concomitant]

REACTIONS (10)
  - BLOOD PRESSURE DECREASED [None]
  - CIRCULATORY COLLAPSE [None]
  - DIZZINESS [None]
  - ENURESIS [None]
  - GASTRITIS EROSIVE [None]
  - HAEMOGLOBIN DECREASED [None]
  - HELICOBACTER GASTRITIS [None]
  - HYPERHIDROSIS [None]
  - LOSS OF CONSCIOUSNESS [None]
  - NAUSEA [None]
